FAERS Safety Report 18024151 (Version 9)
Quarter: 2021Q3

REPORT INFORMATION
  Report Type: Report from Study
  Country: US (occurrence: US)
  Receive Date: 20200714
  Receipt Date: 20210923
  Transmission Date: 20211014
  Serious: Yes (Hospitalization)
  Sender: FDA-Public Use
  Company Number: NVSC2020US194411

PATIENT
  Sex: Male

DRUGS (1)
  1. MAYZENT [Suspect]
     Active Substance: SIPONIMOD
     Indication: MULTIPLE SCLEROSIS
     Dosage: 2 MG, QD
     Route: 048

REACTIONS (6)
  - COVID-19 pneumonia [Recovering/Resolving]
  - Product dose omission issue [Unknown]
  - Malaise [Unknown]
  - Liver disorder [Unknown]
  - Sleep disorder due to a general medical condition [Unknown]
  - Pain in extremity [Unknown]
